FAERS Safety Report 7345154-2 (Version None)
Quarter: 2011Q1

REPORT INFORMATION
  Report Type: 
  Country: None (occurrence: None)
  Receive Date: 20110310
  Receipt Date: 20110208
  Transmission Date: 20110831
  Serious: Yes (Hospitalization, Other)
  Sender: FDA-Public Use
  Company Number: US-BAYER-201037534NA

PATIENT
  Sex: Female
  Weight: 83.447 kg

DRUGS (10)
  1. AXERT [Concomitant]
     Indication: MIGRAINE
  2. ALTACE [Concomitant]
  3. BENICAR HCT [Concomitant]
  4. BENADRYL [Concomitant]
     Dosage: UNK UNK, PRN
  5. ALBUTEROL [Concomitant]
     Dosage: UNK UNK, PRN
  6. VERAPAMIL [Concomitant]
  7. YAZ [Suspect]
     Indication: MENSTRUATION IRREGULAR
     Route: 048
     Dates: start: 20040715, end: 20041121
  8. YASMIN [Suspect]
     Indication: MENSTRUATION IRREGULAR
     Route: 048
     Dates: start: 20040715, end: 20041121
  9. EFFEXOR [Concomitant]
  10. NEXIUM [Concomitant]

REACTIONS (5)
  - DYSPNOEA [None]
  - MIGRAINE [None]
  - PALPITATIONS [None]
  - PULMONARY EMBOLISM [None]
  - PLEURITIC PAIN [None]
